FAERS Safety Report 11517878 (Version 2)
Quarter: 2015Q4

REPORT INFORMATION
  Report Type: Spontaneous
  Country: DE (occurrence: DE)
  Receive Date: 20150917
  Receipt Date: 20151023
  Transmission Date: 20160304
  Serious: Yes (Other)
  Sender: FDA-Public Use
  Company Number: DE-009507513-1509DEU004308

PATIENT
  Age: 75 Year
  Sex: Male

DRUGS (2)
  1. BCG VACCINE [Suspect]
     Active Substance: BCG VACCINE
  2. MK-0000 [Suspect]
     Active Substance: INVESTIGATIONAL PRODUCT
     Dosage: UNK

REACTIONS (1)
  - Bladder necrosis [Recovered/Resolved]
